FAERS Safety Report 15507170 (Version 2)
Quarter: 2018Q4

REPORT INFORMATION
  Report Type: Spontaneous
  Country: BR (occurrence: BR)
  Receive Date: 20181016
  Receipt Date: 20181019
  Transmission Date: 20190205
  Serious: Yes (Death, Life-Threatening, Hospitalization, Other)
  Sender: FDA-Public Use
  Company Number: BR-PFIZER INC-2018416782

PATIENT
  Age: 49 Year
  Sex: Female

DRUGS (23)
  1. ESOMEPRAZOLE. [Concomitant]
     Active Substance: ESOMEPRAZOLE MAGNESIUM
     Indication: VOMITING
     Dosage: UNK
  2. DEXAMETHASONE. [Suspect]
     Active Substance: DEXAMETHASONE
     Dosage: 10 MG, 1X/DAY
  3. ESOMEPRAZOLE. [Concomitant]
     Active Substance: ESOMEPRAZOLE MAGNESIUM
     Indication: VERTIGO
  4. VANCOMYCIN [Suspect]
     Active Substance: VANCOMYCIN
     Dosage: UNK
  5. DEXAMETHASONE. [Suspect]
     Active Substance: DEXAMETHASONE
     Indication: EVIDENCE BASED TREATMENT
     Dosage: 16 MG, 1X/DAY
  6. DEXAMETHASONE. [Suspect]
     Active Substance: DEXAMETHASONE
     Dosage: 10 MG, 1X/DAY
  7. DEXAMETHASONE. [Suspect]
     Active Substance: DEXAMETHASONE
     Dosage: 16 MG, 1X/DAY
  8. PREDNISONE. [Suspect]
     Active Substance: PREDNISONE
     Indication: EVIDENCE BASED TREATMENT
     Dosage: UNK, (15 DAYS OF WEANING)
  9. BROMOPRIDE [Concomitant]
     Active Substance: BROMOPRIDE
     Indication: VERTIGO
  10. MEROPENEM. [Suspect]
     Active Substance: MEROPENEM
     Dosage: 10 MG, 1X/DAY
  11. VANCOMYCIN [Suspect]
     Active Substance: VANCOMYCIN
     Dosage: 10 MG, 1X/DAY
  12. PREDNISONE. [Suspect]
     Active Substance: PREDNISONE
     Dosage: 80 MG, 1X/DAY
  13. PREDNISONE. [Suspect]
     Active Substance: PREDNISONE
     Dosage: 20 DAYS OF WEANING
  14. CINNARIZINE [Concomitant]
     Active Substance: CINNARIZINE
     Indication: VOMITING
     Dosage: UNK
  15. BROMOPRIDE [Concomitant]
     Active Substance: BROMOPRIDE
     Indication: VOMITING
     Dosage: UNK
  16. CODEINE/PARACETAMOL [Concomitant]
     Indication: VOMITING
     Dosage: UNK
  17. CEFEPIME [Suspect]
     Active Substance: CEFEPIME HYDROCHLORIDE
     Indication: EVIDENCE BASED TREATMENT
     Dosage: UNK
  18. PREDNISONE. [Suspect]
     Active Substance: PREDNISONE
     Dosage: UNK(30 DAYS OF WEANING)
  19. CINNARIZINE [Concomitant]
     Active Substance: CINNARIZINE
     Indication: VERTIGO
  20. VANCOMYCIN [Suspect]
     Active Substance: VANCOMYCIN
     Indication: EVIDENCE BASED TREATMENT
     Dosage: UNK
  21. CEFTRIAXONE. [Suspect]
     Active Substance: CEFTRIAXONE
     Dosage: UNK
  22. PREDNISONE. [Suspect]
     Active Substance: PREDNISONE
     Indication: OCCIPITAL NEURALGIA
     Dosage: 20 MG, 1X/DAY
  23. CODEINE/PARACETAMOL [Concomitant]
     Indication: VERTIGO

REACTIONS (2)
  - Encephalitis [Fatal]
  - Trichosporon infection [Fatal]
